FAERS Safety Report 21551851 (Version 2)
Quarter: 2022Q4

REPORT INFORMATION
  Report Type: Report from Study
  Country: ES (occurrence: ES)
  Receive Date: 20221104
  Receipt Date: 20221121
  Transmission Date: 20230112
  Serious: Yes (Life-Threatening, Hospitalization)
  Sender: FDA-Public Use
  Company Number: ES-002147023-NVSC2022ES242450

PATIENT
  Age: 80 Year
  Sex: Female
  Weight: 61.2 kg

DRUGS (8)
  1. LETROZOLE [Suspect]
     Active Substance: LETROZOLE
     Indication: Breast cancer
     Dosage: 2.5 MG, QD
     Route: 048
     Dates: start: 20190715
  2. CITALOPRAM [Concomitant]
     Active Substance: CITALOPRAM HYDROBROMIDE
     Indication: Antidepressant therapy
     Dosage: 20 MG, QD
     Route: 065
     Dates: start: 2022, end: 20221024
  3. VENLAFAXINE [Concomitant]
     Active Substance: VENLAFAXINE HYDROCHLORIDE
     Indication: Antidepressant therapy
     Dosage: 75 MG, QD
     Route: 065
     Dates: start: 20221024
  4. QUETIAPINE [Concomitant]
     Active Substance: QUETIAPINE
     Indication: Antidepressant therapy
     Dosage: 25 MG, QD
     Route: 065
     Dates: start: 20221009
  5. OLANZAPINE [Concomitant]
     Active Substance: OLANZAPINE
     Indication: Antidepressant therapy
     Dosage: 2.5 MG, QD
     Route: 065
     Dates: start: 2022, end: 20221009
  6. OLANZAPINE [Concomitant]
     Active Substance: OLANZAPINE
     Dosage: 5 MG, BID
     Route: 065
  7. ALPRAZOLAM [Concomitant]
     Active Substance: ALPRAZOLAM
     Indication: Antidepressant therapy
     Dosage: 0.25 MG, TID
     Route: 065
  8. MIRTAZAPINE [Concomitant]
     Active Substance: MIRTAZAPINE
     Indication: Antidepressant therapy
     Dosage: 30 MG, QD
     Route: 065

REACTIONS (1)
  - Suicide attempt [Not Recovered/Not Resolved]

NARRATIVE: CASE EVENT DATE: 20221001
